FAERS Safety Report 8710767 (Version 2)
Quarter: 2014Q4

REPORT INFORMATION
  Report Type: Spontaneous
  Country: NL (occurrence: None)
  Receive Date: 20120723
  Receipt Date: 20141212
  Transmission Date: 20150529
  Serious: Yes (Other)
  Sender: FDA-Public Use
  Company Number: EUS-2012-00506

PATIENT
  Age: 30 Month
  Sex: Female

DRUGS (1)
  1. ERWINASE (ASPARAGINASE ERWINIA CHRYSANTHEMI) INJECTION [Suspect]
     Active Substance: ASPARAGINASE ERWINIA CHRYSANTHEMI
     Indication: ACUTE LYMPHOCYTIC LEUKAEMIA
     Dosage: 2000 IU/M2, THREE TIMES A WEEK

REACTIONS (5)
  - Plasmapheresis [None]
  - Mydriasis [None]
  - Hyperammonaemic encephalopathy [None]
  - Toxicity to various agents [None]
  - Unresponsive to stimuli [None]
